FAERS Safety Report 18643904 (Version 1)
Quarter: 2020Q4

REPORT INFORMATION
  Report Type: Spontaneous
  Country: US (occurrence: US)
  Receive Date: 20201221
  Receipt Date: 20201221
  Transmission Date: 20210114
  Serious: No
  Sender: FDA-Public Use
  Company Number: None

PATIENT
  Age: 64 Year
  Sex: Female

DRUGS (19)
  1. BACLOFEN. [Concomitant]
     Active Substance: BACLOFEN
  2. CHOLECALCIFEROL [Concomitant]
     Active Substance: CHOLECALCIFEROL
  3. DULOXETINE. [Concomitant]
     Active Substance: DULOXETINE
  4. ENOXAPARIN [Concomitant]
     Active Substance: ENOXAPARIN
  5. ARIPIPRAZOLE. [Concomitant]
     Active Substance: ARIPIPRAZOLE
  6. THIAMINE. [Concomitant]
     Active Substance: THIAMINE
  7. REMDESIVIR. [Suspect]
     Active Substance: REMDESIVIR
     Indication: COVID-19
  8. ASPIRIN. [Concomitant]
     Active Substance: ASPIRIN
  9. LORAZEPAM. [Concomitant]
     Active Substance: LORAZEPAM
  10. SEROQUEL [Concomitant]
     Active Substance: QUETIAPINE FUMARATE
  11. ALPRAZOLAM. [Concomitant]
     Active Substance: ALPRAZOLAM
  12. ZINC SULFATE. [Concomitant]
     Active Substance: ZINC SULFATE
  13. ASCORBIC ACID. [Concomitant]
     Active Substance: ASCORBIC ACID
  14. DEXMEDETOMIDINE. [Concomitant]
     Active Substance: DEXMEDETOMIDINE
  15. MELATONIN [Concomitant]
     Active Substance: MELATONIN
  16. METHYLPREDNISOLONE. [Concomitant]
     Active Substance: METHYLPREDNISOLONE
  17. LAMOTRIGINE. [Concomitant]
     Active Substance: LAMOTRIGINE
  18. TRAZODONE [Concomitant]
     Active Substance: TRAZODONE HYDROCHLORIDE
  19. FAMOTIDINE. [Concomitant]
     Active Substance: FAMOTIDINE

REACTIONS (3)
  - Agitation [None]
  - Hypervigilance [None]
  - Bradycardia [None]
